FAERS Safety Report 11535385 (Version 2)
Quarter: 2015Q4

REPORT INFORMATION
  Report Type: Report from Study
  Country: US (occurrence: US)
  Receive Date: 20150922
  Receipt Date: 20151221
  Transmission Date: 20160304
  Serious: Yes (Life-Threatening, Hospitalization, Other)
  Sender: FDA-Public Use
  Company Number: US-ELI_LILLY_AND_COMPANY-US201509003865

PATIENT
  Age: 68 Year
  Sex: Male

DRUGS (6)
  1. INSULIN, LISPRO [Suspect]
     Active Substance: INSULIN LISPRO
     Indication: TYPE 2 DIABETES MELLITUS
     Dosage: 30 U, BID
     Route: 065
     Dates: start: 2010, end: 20150906
  2. INSULIN, LISPRO [Suspect]
     Active Substance: INSULIN LISPRO
     Indication: TYPE 2 DIABETES MELLITUS
     Dosage: 30 U, BID
     Route: 065
     Dates: start: 20150906
  3. INSULIN, LISPRO [Suspect]
     Active Substance: INSULIN LISPRO
     Indication: TYPE 2 DIABETES MELLITUS
     Dosage: UNK
     Route: 065
     Dates: start: 20150906
  4. LANTUS [Concomitant]
     Active Substance: INSULIN GLARGINE
  5. INSULIN, LISPRO [Suspect]
     Active Substance: INSULIN LISPRO
     Indication: TYPE 2 DIABETES MELLITUS
     Dosage: UNK, UNKNOWN
     Route: 065
     Dates: start: 2010, end: 20150906
  6. INSULIN, LISPRO [Suspect]
     Active Substance: INSULIN LISPRO
     Dosage: 30 U, BID
     Route: 065

REACTIONS (13)
  - Aneurysm [Unknown]
  - Blood glucose increased [Recovering/Resolving]
  - Hypersensitivity [Unknown]
  - Dyspnoea [Unknown]
  - Urinary retention [Unknown]
  - Blood glucose increased [Unknown]
  - Medication error [Recovered/Resolved]
  - Diabetic ketoacidosis [Unknown]
  - Vision blurred [Unknown]
  - Tympanic membrane perforation [Unknown]
  - Blood glucose abnormal [Unknown]
  - Myocardial necrosis marker increased [Unknown]
  - Hypoacusis [Unknown]

NARRATIVE: CASE EVENT DATE: 201509
